FAERS Safety Report 8720495 (Version 2)
Quarter: 2015Q2

REPORT INFORMATION
  Report Type: Report from Study
  Country: US (occurrence: US)
  Receive Date: 20120813
  Receipt Date: 20150624
  Transmission Date: 20150821
  Serious: Yes (Hospitalization, Other)
  Sender: FDA-Public Use
  Company Number: US-ROCHE-1098710

PATIENT
  Sex: Male

DRUGS (1)
  1. ACTIVASE [Suspect]
     Active Substance: ALTEPLASE
     Indication: MYOCARDIAL INFARCTION
     Route: 042

REACTIONS (3)
  - Myocardial infarction [Unknown]
  - Ventricular extrasystoles [Unknown]
  - Chest pain [Unknown]
